FAERS Safety Report 5632201-9 (Version None)
Quarter: 2008Q1

REPORT INFORMATION
  Report Type: 
  Country: None (occurrence: None)
  Receive Date: 20080220
  Receipt Date: 20080211
  Transmission Date: 20080703
  Serious: Yes (Death)
  Sender: FDA-Public Use
  Company Number: CL-ABBOTT-08P-034-0435919-00

PATIENT
  Sex: Female
  Weight: 49 kg

DRUGS (3)
  1. KALETRA [Suspect]
     Indication: HIV INFECTION
     Dosage: 800/200-DAILY; 400/100-UNIT
     Route: 048
     Dates: start: 20060803, end: 20080122
  2. ATAZANAVIR SULFATE [Concomitant]
     Indication: HIV INFECTION
     Route: 048
     Dates: start: 20060803, end: 20080122
  3. TENOFOVIR DISOPROXIL FUMARATE [Concomitant]
     Indication: HIV INFECTION
     Route: 048
     Dates: start: 20060803, end: 20080122

REACTIONS (8)
  - CACHEXIA [None]
  - HIV INFECTION CDC GROUP III [None]
  - IMMUNOSUPPRESSION [None]
  - PULMONARY SEPSIS [None]
  - PYREXIA [None]
  - RESPIRATORY DISTRESS [None]
  - RESPIRATORY FAILURE [None]
  - TREATMENT NONCOMPLIANCE [None]
